FAERS Safety Report 9924873 (Version 1)
Quarter: 2014Q1

REPORT INFORMATION
  Report Type: Spontaneous
  Country: TR (occurrence: None)
  Receive Date: 20140221
  Receipt Date: 20140221
  Transmission Date: 20141002
  Serious: Yes (Life-Threatening, Hospitalization)
  Sender: FDA-Public Use
  Company Number: 2014P1001268

PATIENT
  Age: 17 Year
  Sex: Female

DRUGS (1)
  1. ISONIAZID (ISONIAZID) [Suspect]

REACTIONS (7)
  - Hyperglycaemia [None]
  - Leukocytosis [None]
  - Lethargy [None]
  - Loss of consciousness [None]
  - Metabolic acidosis [None]
  - Convulsion [None]
  - Suicide attempt [None]
